FAERS Safety Report 25440079 (Version 1)
Quarter: 2025Q2

REPORT INFORMATION
  Report Type: Spontaneous
  Country: HU (occurrence: HU)
  Receive Date: 20250616
  Receipt Date: 20250616
  Transmission Date: 20250717
  Serious: Yes (Life-Threatening, Other)
  Sender: PFIZER
  Company Number: HU-ROCHE-10000304441

PATIENT

DRUGS (4)
  1. RITUXIMAB [Suspect]
     Active Substance: RITUXIMAB
  2. TOCILIZUMAB [Suspect]
     Active Substance: TOCILIZUMAB
  3. HYDROXYCHLOROQUINE [Suspect]
     Active Substance: HYDROXYCHLOROQUINE
     Indication: COVID-19
  4. METHOTREXATE [Concomitant]
     Active Substance: METHOTREXATE
     Indication: COVID-19

REACTIONS (2)
  - Anaphylactic reaction [Unknown]
  - Gastrointestinal injury [Unknown]
